FAERS Safety Report 9840374 (Version 1)
Quarter: 2014Q1

REPORT INFORMATION
  Report Type: Spontaneous
  Country: US (occurrence: None)
  Receive Date: 20140121
  Receipt Date: 20140121
  Transmission Date: 20141002
  Serious: No
  Sender: FDA-Public Use
  Company Number: None

PATIENT
  Sex: Female
  Weight: 94.35 kg

DRUGS (1)
  1. SUMATRIPTAN [Suspect]
     Route: 048

REACTIONS (3)
  - Product substitution issue [None]
  - Drug effect delayed [None]
  - Drug effect decreased [None]
